FAERS Safety Report 5366855-1 (Version None)
Quarter: 2007Q2

REPORT INFORMATION
  Report Type: 
  Country: None (occurrence: None)
  Receive Date: 20070622
  Receipt Date: 20070102
  Transmission Date: 20071010
  Serious: No
  Sender: FDA-Public Use
  Company Number: US-ASTRAZENECA-2007UW00117

PATIENT
  Age: 78 Year
  Sex: Female

DRUGS (4)
  1. RHINOCORT [Suspect]
     Indication: SINUS DISORDER
     Route: 045
  2. LISINOPRIL [Concomitant]
  3. COREG [Concomitant]
  4. LEVOSTATIN [Concomitant]

REACTIONS (2)
  - EPISTAXIS [None]
  - NASAL DRYNESS [None]
